FAERS Safety Report 14480360 (Version 1)
Quarter: 2018Q1

REPORT INFORMATION
  Report Type: Spontaneous
  Country: US (occurrence: US)
  Receive Date: 20180201
  Receipt Date: 20180201
  Transmission Date: 20180509
  Serious: Yes (Hospitalization)
  Sender: FDA-Public Use
  Company Number: None

PATIENT
  Age: 65 Year
  Sex: Female

DRUGS (2)
  1. LISINOPRIL. [Suspect]
     Active Substance: LISINOPRIL
  2. NAPROXEN. [Suspect]
     Active Substance: NAPROXEN

REACTIONS (8)
  - Asthenia [None]
  - Infection [None]
  - Lethargy [None]
  - Drug interaction [None]
  - Dizziness [None]
  - Blood creatine increased [None]
  - Hyperkalaemia [None]
  - Mental status changes [None]
